FAERS Safety Report 12656490 (Version 2)
Quarter: 2016Q3

REPORT INFORMATION
  Report Type: Spontaneous
  Country: US (occurrence: US)
  Receive Date: 20160816
  Receipt Date: 20160817
  Transmission Date: 20161109
  Serious: Yes (Death, Other)
  Sender: FDA-Public Use
  Company Number: US-SAOL THERAPEUTICS-2016SAO00415

PATIENT
  Age: 17 Year
  Sex: Female

DRUGS (2)
  1. LIORESAL [Suspect]
     Active Substance: BACLOFEN
     Indication: CEREBRAL PALSY
     Dosage: 727 ?G, \DAY
     Route: 037
     Dates: end: 20140730
  2. LIORESAL [Suspect]
     Active Substance: BACLOFEN
     Indication: MUSCLE SPASTICITY

REACTIONS (36)
  - Muscle tightness [Unknown]
  - Mobility decreased [Unknown]
  - Device malfunction [Unknown]
  - Device connection issue [Unknown]
  - Gastrointestinal necrosis [Fatal]
  - Altered state of consciousness [Fatal]
  - Infectious mononucleosis [Fatal]
  - Vomiting [Fatal]
  - Unevaluable event [Fatal]
  - Injury [Unknown]
  - Muscle spasticity [Unknown]
  - Drug withdrawal syndrome [Fatal]
  - Intestinal ischaemia [Fatal]
  - Pupillary disorder [Fatal]
  - Screaming [Unknown]
  - Device occlusion [Unknown]
  - Unresponsive to stimuli [Fatal]
  - Agitation [Fatal]
  - Sedation [Fatal]
  - Underdose [Fatal]
  - Weight decreased [Unknown]
  - Emotional distress [Unknown]
  - Gastrointestinal haemorrhage [Fatal]
  - Crying [Fatal]
  - Dyspnoea [Unknown]
  - Muscle rigidity [Unknown]
  - Discomfort [Fatal]
  - Retching [Fatal]
  - Anxiety [Unknown]
  - Appetite disorder [Unknown]
  - Overdose [Fatal]
  - Lethargy [Fatal]
  - Pain [Unknown]
  - Bruxism [Unknown]
  - Device damage [Unknown]
  - Nausea [Fatal]

NARRATIVE: CASE EVENT DATE: 201402
